FAERS Safety Report 24293282 (Version 1)
Quarter: 2024Q3

REPORT INFORMATION
  Report Type: Spontaneous
  Country: US (occurrence: None)
  Receive Date: 20240906
  Receipt Date: 20240906
  Transmission Date: 20241017
  Serious: No
  Sender: DOMPE FARMACEUTICI
  Company Number: US-FARMAPROD-202308-202312-3792

PATIENT
  Sex: Female

DRUGS (6)
  1. OXERVATE [Suspect]
     Active Substance: CENEGERMIN-BKBJ
     Indication: Neurotrophic keratopathy
     Route: 047
     Dates: start: 20231218
  2. MELOXICAM [Concomitant]
     Active Substance: MELOXICAM
  3. LOTEPREDNOL ETABONATE [Concomitant]
     Active Substance: LOTEPREDNOL ETABONATE
  4. MAGNESIUM [Concomitant]
     Active Substance: MAGNESIUM
  5. VITAMINS [Concomitant]
     Active Substance: VITAMINS
  6. LEVOTHYROXINE SODIUM [Concomitant]
     Active Substance: LEVOTHYROXINE SODIUM

REACTIONS (4)
  - Eye irritation [Unknown]
  - Eye pain [Unknown]
  - Ocular discomfort [Unknown]
  - Photophobia [Unknown]
